FAERS Safety Report 5421198-2 (Version None)
Quarter: 2007Q3

REPORT INFORMATION
  Report Type: 
  Country: None (occurrence: None)
  Receive Date: 20070719
  Receipt Date: 20070508
  Transmission Date: 20080115
  Serious: Yes (Other)
  Sender: FDA-Public Use
  Company Number: HQWYE139511MAY07

PATIENT
  Age: 56 Year
  Sex: Female
  Weight: 90.8 kg

DRUGS (5)
  1. ADVIL PM [Suspect]
     Indication: INSOMNIA
     Dosage: 2 CAPLETS, 1 TIME, ORAL
     Route: 048
     Dates: start: 20070505, end: 20070505
  2. ADVIL PM [Suspect]
     Indication: PAIN
     Dosage: 2 CAPLETS, 1 TIME, ORAL
     Route: 048
     Dates: start: 20070505, end: 20070505
  3. ACETYLSALICYLIC ACID SRT [Concomitant]
  4. PRILOSEC [Concomitant]
  5. PRAMIPEXOLE DIHYDROCHLORIDE [Concomitant]

REACTIONS (3)
  - COUGH [None]
  - EYE SWELLING [None]
  - WHEEZING [None]
